FAERS Safety Report 5753870-9 (Version None)
Quarter: 2008Q2

REPORT INFORMATION
  Report Type: 
  Country: None (occurrence: None)
  Receive Date: 20080530
  Receipt Date: 20080523
  Transmission Date: 20081010
  Serious: Yes (Hospitalization, Other)
  Sender: FDA-Public Use
  Company Number: A0727539A

PATIENT
  Age: 34 Year
  Sex: Female
  Weight: 70.9 kg

DRUGS (10)
  1. FLOLAN [Suspect]
     Dosage: 92MLKH UNKNOWN
     Route: 042
  2. ALDACTONE [Concomitant]
     Dosage: 100MG TWICE PER DAY
     Route: 048
  3. ZOLOFT [Concomitant]
     Dosage: 150MG PER DAY
     Route: 048
  4. VIAGRA [Concomitant]
     Dosage: 25MG THREE TIMES PER DAY
     Route: 048
  5. NOVOLOG [Concomitant]
  6. CIPRO [Concomitant]
     Dosage: 500MG TWICE PER DAY
     Route: 048
  7. K-DUR [Concomitant]
     Dosage: 40MEQ FOUR TIMES PER DAY
     Route: 048
  8. IMURAN [Concomitant]
     Dosage: 50MG TWICE PER DAY
     Route: 048
  9. AMBIEN CR [Concomitant]
     Dosage: 12.5MG AS REQUIRED
     Route: 048
  10. BUMEX [Concomitant]
     Dosage: 2MG AS REQUIRED
     Route: 048

REACTIONS (8)
  - CARDIOMEGALY [None]
  - CATHETER SITE ERYTHEMA [None]
  - CONTUSION [None]
  - EXTRAVASATION [None]
  - INFUSION SITE EXTRAVASATION [None]
  - OEDEMA PERIPHERAL [None]
  - PALLOR [None]
  - PLATELET COUNT DECREASED [None]
